FAERS Safety Report 9425550 (Version 1)
Quarter: 2013Q3

REPORT INFORMATION
  Report Type: Spontaneous
  Country: US (occurrence: US)
  Receive Date: 20130729
  Receipt Date: 20130729
  Transmission Date: 20140515
  Serious: No
  Sender: FDA-Public Use
  Company Number: US-MYLANLABS-2012S1020978

PATIENT
  Age: 48 Year
  Sex: Female
  Weight: 75.3 kg

DRUGS (18)
  1. LEVOTHYROXINE SODIUM TABLETS, USP [Suspect]
     Indication: THYROID HORMONE REPLACEMENT THERAPY
     Route: 048
     Dates: start: 201208, end: 201210
  2. LEVOTHYROXINE SODIUM TABLETS, USP [Suspect]
     Indication: HYPOTHYROIDISM
     Route: 048
     Dates: start: 201208, end: 201210
  3. VITAMINS [Concomitant]
     Indication: VITAMIN SUPPLEMENTATION
     Route: 048
  4. MINERAL SUPPLEMENTS [Concomitant]
     Indication: MINERAL SUPPLEMENTATION
     Route: 048
  5. ATIVAN [Concomitant]
  6. KLONOPIN [Concomitant]
  7. METOPROLOL [Concomitant]
  8. MOBIC [Concomitant]
  9. NEXIUM [Concomitant]
  10. ZOPHRAN [Concomitant]
  11. VERAMYST [Concomitant]
  12. COENZYME Q10 [Concomitant]
  13. MAGNESIUM [Concomitant]
  14. FOLIC ACID [Concomitant]
  15. VITAMIN E [Concomitant]
  16. ASPIRIN [Concomitant]
     Dosage: WHEN NOT TAKING MEDICINE, FLEXOR PATCH
  17. CALCIUM [Concomitant]
  18. NITROGLYCERIN [Concomitant]

REACTIONS (5)
  - Drug ineffective [Recovered/Resolved]
  - Blood thyroid stimulating hormone increased [Recovered/Resolved]
  - Weight increased [Not Recovered/Not Resolved]
  - Alopecia [Not Recovered/Not Resolved]
  - Contusion [Recovered/Resolved]
